FAERS Safety Report 24365271 (Version 2)
Quarter: 2024Q4

REPORT INFORMATION
  Report Type: Report from Study
  Country: CN (occurrence: CN)
  Receive Date: 20240926
  Receipt Date: 20241030
  Transmission Date: 20250114
  Serious: Yes (Other)
  Sender: ROCHE
  Company Number: CN-ROCHE-10000015632

PATIENT
  Age: 70 Year
  Sex: Male

DRUGS (1)
  1. GLOFITAMAB [Suspect]
     Active Substance: GLOFITAMAB
     Indication: Diffuse large B-cell lymphoma
     Route: 042
     Dates: start: 20240408

REACTIONS (6)
  - Hyperpyrexia [Unknown]
  - Herpes zoster [Unknown]
  - Pain [Unknown]
  - Hepatic function abnormal [Unknown]
  - Interstitial lung disease [Unknown]
  - Fungal infection [Unknown]
